FAERS Safety Report 5474429-7 (Version None)
Quarter: 2007Q4

REPORT INFORMATION
  Report Type: 
  Country: None (occurrence: None)
  Receive Date: 20071002
  Receipt Date: 20070928
  Transmission Date: 20080405
  Serious: Yes (Hospitalization)
  Sender: FDA-Public Use
  Company Number: JP-BRISTOL-MYERS SQUIBB COMPANY-13891817

PATIENT
  Sex: Male

DRUGS (2)
  1. PACLITAXEL [Suspect]
     Dates: start: 20070711
  2. LAPATINIB [Suspect]
     Dates: start: 20070712

REACTIONS (2)
  - DIARRHOEA [None]
  - HYPOALBUMINAEMIA [None]
